FAERS Safety Report 10064620 (Version 1)
Quarter: 2014Q2

REPORT INFORMATION
  Report Type: Spontaneous
  Country: US (occurrence: None)
  Receive Date: 20140407
  Receipt Date: 20140407
  Transmission Date: 20141212
  Serious: Yes (Other)
  Sender: FDA-Public Use
  Company Number: None

PATIENT
  Age: 79 Year
  Sex: Female
  Weight: 36.29 kg

DRUGS (2)
  1. MORPHINE [Suspect]
     Indication: PAIN
     Dosage: TAKEN BY MOUTH, 1XAN HOUR
     Dates: start: 20140306, end: 20140406
  2. TEMAZEPAM [Suspect]
     Indication: ANXIETY
     Dosage: TAKEN BY MOUTH
     Dates: end: 20140406

REACTIONS (6)
  - Overdose [None]
  - Coma [None]
  - Bedridden [None]
  - Abasia [None]
  - Aphasia [None]
  - Victim of elder abuse [None]
